FAERS Safety Report 24361618 (Version 2)
Quarter: 2024Q4

REPORT INFORMATION
  Report Type: Report from Study
  Country: US (occurrence: US)
  Receive Date: 20240925
  Receipt Date: 20241003
  Transmission Date: 20250115
  Serious: Yes (Hospitalization, Other)
  Sender: ABBVIE
  Company Number: US-ABBVIE-5933276

PATIENT
  Age: 72 Year
  Sex: Male
  Weight: 77.11 kg

DRUGS (2)
  1. DUOPA [Suspect]
     Active Substance: CARBIDOPA\LEVODOPA
     Indication: Parkinson^s disease
     Route: 050
     Dates: start: 20230501
  2. DUOPA [Suspect]
     Active Substance: CARBIDOPA\LEVODOPA

REACTIONS (7)
  - Hypotension [Not Recovered/Not Resolved]
  - Pulmonary fibrosis [Unknown]
  - Head injury [Recovered/Resolved]
  - Loss of consciousness [Recovered/Resolved]
  - Breast cancer stage I [Unknown]
  - Fall [Unknown]
  - Rash macular [Unknown]

NARRATIVE: CASE EVENT DATE: 20240825
